FAERS Safety Report 9000251 (Version 1)
Quarter: 2013Q1

REPORT INFORMATION
  Report Type: Spontaneous
  Country: US (occurrence: US)
  Receive Date: 20130106
  Receipt Date: 20130106
  Transmission Date: 20140127
  Serious: No
  Sender: FDA-Public Use
  Company Number: US-ASTRAZENECA-2012SE93927

PATIENT
  Age: 56 Year
  Sex: Male

DRUGS (1)
  1. TOPROL XL [Suspect]
     Route: 048

REACTIONS (1)
  - Diabetes mellitus [Unknown]
